FAERS Safety Report 6582138-6 (Version None)
Quarter: 2010Q1

REPORT INFORMATION
  Report Type: 
  Country: None (occurrence: None)
  Receive Date: 20100212
  Receipt Date: 20100212
  Transmission Date: 20100710
  Serious: Yes (Other)
  Sender: FDA-Public Use
  Company Number: None

PATIENT

DRUGS (1)
  1. VENLAFAXINE HCL [Suspect]

REACTIONS (2)
  - DRUG WITHDRAWAL SYNDROME [None]
  - ELECTRIC SHOCK [None]
